FAERS Safety Report 9332802 (Version 2)
Quarter: 2013Q3

REPORT INFORMATION
  Report Type: Report from Study
  Country: FR (occurrence: FR)
  Receive Date: 20130606
  Receipt Date: 20130807
  Transmission Date: 20140515
  Serious: Yes (Hospitalization)
  Sender: FDA-Public Use
  Company Number: FR-BAYER-2013-065790

PATIENT
  Age: 72 Year
  Sex: Male
  Weight: 118 kg

DRUGS (6)
  1. REGORAFENIB [Suspect]
     Indication: COLORECTAL CANCER METASTATIC
     Dosage: 160 MG DAILY
     Route: 048
     Dates: start: 20130403, end: 20130416
  2. LYRICA [Concomitant]
     Indication: PAIN
     Dosage: 100 MG, BID
     Dates: start: 201303
  3. SOLUPRED [PREDNISOLONE] [Concomitant]
     Indication: PAIN
     Dosage: DAILY DOSE 100 MG
     Dates: start: 201303
  4. OXYCONTIN [Concomitant]
     Indication: PAIN
     Dosage: DAILY DOSE 240 MG
     Dates: start: 201301
  5. OXYNORM [Concomitant]
     Indication: PAIN
     Dosage: 40 MG, TID
     Dates: start: 201301
  6. MOPRAL [Concomitant]
     Indication: PROPHYLAXIS
     Dosage: 20 MG, QD
     Dates: start: 201304

REACTIONS (1)
  - Toxic skin eruption [Recovered/Resolved]
